FAERS Safety Report 9145466 (Version 1)
Quarter: 2013Q1

REPORT INFORMATION
  Report Type: Spontaneous
  Country: IT (occurrence: IT)
  Receive Date: 20130307
  Receipt Date: 20130307
  Transmission Date: 20140127
  Serious: Yes (Other)
  Sender: FDA-Public Use
  Company Number: IT-PFIZER INC-2013078614

PATIENT
  Age: 51 Year
  Sex: Female

DRUGS (2)
  1. TRIATEC [Suspect]
     Indication: HYPERTENSION
     Dosage: 10 MG, SINGLE
     Route: 048
     Dates: start: 20130202, end: 20130202
  2. NORVASC [Suspect]
     Dosage: UNK
     Route: 065

REACTIONS (2)
  - Wrong drug administered [Recovering/Resolving]
  - Hypertensive crisis [Recovering/Resolving]
